FAERS Safety Report 6334004-9 (Version None)
Quarter: 2009Q3

REPORT INFORMATION
  Report Type: 
  Country: None (occurrence: None)
  Receive Date: 20090829
  Receipt Date: 20090714
  Transmission Date: 20100115
  Serious: No
  Sender: FDA-Public Use
  Company Number: US-ABBOTT-09P-163-0585245-00

PATIENT
  Sex: Female
  Weight: 104.42 kg

DRUGS (5)
  1. SIMCOR [Suspect]
     Indication: BLOOD CHOLESTEROL INCREASED
     Dosage: 500MG/20MG AT BEDTIME
     Dates: start: 20090601
  2. DIOVAN [Concomitant]
     Indication: DRUG USE FOR UNKNOWN INDICATION
  3. CARVEDILOL [Concomitant]
     Indication: DRUG USE FOR UNKNOWN INDICATION
  4. TEKTURNA [Concomitant]
     Indication: DRUG USE FOR UNKNOWN INDICATION
  5. HUMULIN R [Concomitant]
     Indication: DRUG USE FOR UNKNOWN INDICATION
     Dosage: PER PUMP

REACTIONS (1)
  - OEDEMA PERIPHERAL [None]
